FAERS Safety Report 4887224-4 (Version None)
Quarter: 2005Q4

REPORT INFORMATION
  Report Type: 
  Country: None (occurrence: None)
  Receive Date: 20051221
  Receipt Date: 20050928
  Transmission Date: 20060501
  Serious: No
  Sender: FDA-Public Use
  Company Number: US-YAMANOUCHI-YPA20050439

PATIENT
  Age: 81 Year
  Sex: Male

DRUGS (12)
  1. VESICARE [Suspect]
     Indication: HYPERTONIC BLADDER
     Dosage: 5 MG QD PO
     Route: 048
     Dates: start: 20050805
  2. LEVOTHYROXINE SODIUM [Concomitant]
  3. ATENOLOL [Concomitant]
  4. ATICAND [Concomitant]
  5. HYDROCHLOROTHIAZIDE [Concomitant]
  6. COREG [Concomitant]
  7. ASPIRIN [Concomitant]
  8. OMEPRAZOLE [Concomitant]
  9. CENTRUM [Concomitant]
  10. METAMUCIL [Concomitant]
  11. SIMVASTATIN [Concomitant]
  12. MILK OF MAGNESIA TAB [Concomitant]

REACTIONS (4)
  - CONSTIPATION [None]
  - DRUG INEFFECTIVE [None]
  - DRY MOUTH [None]
  - MICTURITION URGENCY [None]
